FAERS Safety Report 7498867-6 (Version None)
Quarter: 2011Q2

REPORT INFORMATION
  Report Type: 
  Country: None (occurrence: None)
  Receive Date: 20110524
  Receipt Date: 20110511
  Transmission Date: 20111010
  Serious: Yes (Other)
  Sender: FDA-Public Use
  Company Number: US-BAYER-201033320NA

PATIENT
  Age: 21 Year
  Sex: Female
  Weight: 58.05 kg

DRUGS (9)
  1. ADVAIR DISKUS 100/50 [Concomitant]
     Dosage: 0.250 MG, QD
     Route: 055
  2. MULTI-VITAMIN [Concomitant]
     Dosage: UNK UNK, QD
  3. NEXIUM [Concomitant]
     Dosage: 40 MG, BID
     Route: 048
  4. ASCORBIC ACID [Concomitant]
  5. FERROUS SULFATE TAB [Concomitant]
  6. YAZ [Suspect]
     Indication: DYSMENORRHOEA
  7. SINGULAIR [Concomitant]
     Dosage: 10 MG, QD
     Route: 048
  8. CALCIUM CARBONATE [Concomitant]
  9. YAZ [Suspect]
     Indication: CONTRACEPTION
     Dates: start: 20060801, end: 20070901

REACTIONS (5)
  - PULMONARY EMBOLISM [None]
  - MYOCARDIAL STRAIN [None]
  - PULMONARY HYPERTENSION [None]
  - PAIN [None]
  - DEEP VEIN THROMBOSIS [None]
